FAERS Safety Report 8557861-4 (Version None)
Quarter: 2012Q3

REPORT INFORMATION
  Report Type: 
  Country: None (occurrence: None)
  Receive Date: 20120801
  Receipt Date: 20120625
  Transmission Date: 20120928
  Serious: Yes (Hospitalization)
  Sender: FDA-Public Use
  Company Number: JP-GLAXOSMITHKLINE-B0811382A

PATIENT
  Sex: Male

DRUGS (19)
  1. PENTASA [Concomitant]
     Dosage: 1500MG PER DAY
     Route: 048
     Dates: end: 20120626
  2. PAXIL [Suspect]
     Indication: DEPRESSION
     Dosage: 10MG PER DAY
     Route: 048
     Dates: start: 20120615
  3. LANSOPRAZOLE [Concomitant]
     Dosage: 15MG PER DAY
     Route: 048
     Dates: start: 20111106
  4. FERROUS CITRATE [Concomitant]
     Dosage: 100MG PER DAY
     Route: 048
     Dates: start: 20120617, end: 20120626
  5. PREDNISOLONE [Concomitant]
     Dosage: 20MG PER DAY
     Route: 048
     Dates: end: 20120626
  6. LAC-B [Concomitant]
     Dosage: 3G PER DAY
     Route: 048
  7. CANDESARTAN CILEXETIL [Concomitant]
     Dosage: 4MG PER DAY
     Route: 048
     Dates: start: 20111106, end: 20120626
  8. PENTASA [Concomitant]
     Dosage: 500MG PER DAY
     Route: 048
     Dates: start: 20120619, end: 20120619
  9. CLARITHROMYCIN [Concomitant]
     Dosage: 400MG PER DAY
     Route: 048
     Dates: start: 20120606, end: 20120615
  10. CRESTOR [Concomitant]
     Dosage: 2.5MG PER DAY
     Route: 048
     Dates: start: 20111106
  11. HALCION [Concomitant]
     Dosage: .125MG PER DAY
     Route: 048
     Dates: end: 20120626
  12. RISEDRONATE SODIUM [Concomitant]
     Route: 048
  13. FUROSEMIDE [Concomitant]
     Dosage: 20MG PER DAY
     Route: 048
  14. ASPIRIN [Concomitant]
     Dosage: 100MG PER DAY
     Route: 048
  15. SIGMART [Concomitant]
     Dosage: 15MG PER DAY
     Route: 048
  16. BASEN [Concomitant]
     Dosage: .9MG PER DAY
     Route: 048
     Dates: end: 20120626
  17. PLAVIX [Concomitant]
     Dosage: 75MG PER DAY
     Route: 048
     Dates: start: 20111106
  18. ONEALFA [Concomitant]
     Dosage: .5MCG PER DAY
     Route: 048
  19. CHINESE MEDICINE [Concomitant]
     Dosage: 6G PER DAY
     Route: 048
     Dates: start: 20120603, end: 20120626

REACTIONS (5)
  - RECTAL HAEMORRHAGE [None]
  - ANAEMIA [None]
  - MELAENA [None]
  - HAEMATOCHEZIA [None]
  - DEPRESSION [None]
